FAERS Safety Report 11128077 (Version 1)
Quarter: 2015Q2

REPORT INFORMATION
  Report Type: Spontaneous
  Country: FR (occurrence: FR)
  Receive Date: 20150521
  Receipt Date: 20150521
  Transmission Date: 20150821
  Serious: Yes (Hospitalization, Other)
  Sender: FDA-Public Use
  Company Number: FR-PFIZER INC-2015170543

PATIENT
  Age: 75 Year
  Sex: Male

DRUGS (8)
  1. LASILIX [Concomitant]
     Active Substance: FUROSEMIDE
     Dosage: UNK
  2. XATRAL [Concomitant]
     Active Substance: ALFUZOSIN
     Dosage: UNK
  3. NOVOMIX 30 [Concomitant]
     Active Substance: INSULIN ASPART
     Dosage: UNK
  4. CORDARONE [Suspect]
     Active Substance: AMIODARONE HYDROCHLORIDE
     Dosage: 200 MG, DAILY
     Route: 048
     Dates: end: 20150327
  5. CRESTOR [Concomitant]
     Active Substance: ROSUVASTATIN CALCIUM
     Dosage: UNK
  6. TEMERIT [Suspect]
     Active Substance: NEBIVOLOL
     Dosage: 2.5, 1X/DAY
     Route: 048
     Dates: end: 20150327
  7. COVERSYL [Suspect]
     Active Substance: PERINDOPRIL
     Dosage: 2.5, 1X/DAY
     Route: 048
     Dates: end: 20150327
  8. INEXIUM [Concomitant]
     Active Substance: ESOMEPRAZOLE
     Dosage: UNK

REACTIONS (8)
  - Hyperkalaemia [Recovered/Resolved]
  - Brain natriuretic peptide increased [Unknown]
  - Bradycardia [Unknown]
  - Hypothermia [Recovered/Resolved]
  - Hypotension [Recovered/Resolved]
  - Haematuria [Unknown]
  - Renal failure [Recovering/Resolving]
  - Atrioventricular block [Unknown]

NARRATIVE: CASE EVENT DATE: 20150327
